FAERS Safety Report 25434264 (Version 1)
Quarter: 2025Q2

REPORT INFORMATION
  Report Type: Spontaneous
  Country: GB (occurrence: GB)
  Receive Date: 20250613
  Receipt Date: 20250613
  Transmission Date: 20250716
  Serious: Yes (Life-Threatening, Other)
  Sender: MYLAN
  Company Number: None

PATIENT
  Age: 55 Year
  Weight: 72 kg

DRUGS (7)
  1. ROCURONIUM [Suspect]
     Active Substance: ROCURONIUM BROMIDE
     Indication: Product used for unknown indication
  2. ROCURONIUM [Suspect]
     Active Substance: ROCURONIUM BROMIDE
  3. SUCCINYLCHOLINE [Concomitant]
     Active Substance: SUCCINYLCHOLINE
     Indication: Muscle relaxant therapy
  4. METARAMINOL [Concomitant]
     Active Substance: METARAMINOL
  5. PROPOFOL [Concomitant]
     Active Substance: PROPOFOL
     Indication: Induction of anaesthesia
  6. REMIFENTANIL [Concomitant]
     Active Substance: REMIFENTANIL
     Indication: Induction of anaesthesia
  7. OXYGEN [Concomitant]
     Active Substance: OXYGEN

REACTIONS (8)
  - Anaphylactic reaction [Recovering/Resolving]
  - Hypoxia [Unknown]
  - Hypotension [Unknown]
  - Tachycardia [Unknown]
  - Airway peak pressure increased [Unknown]
  - Dysphonia [Unknown]
  - Erythema [Unknown]
  - Pruritus [Unknown]
